FAERS Safety Report 6257362-2 (Version None)
Quarter: 2009Q3

REPORT INFORMATION
  Report Type: 
  Country: None (occurrence: None)
  Receive Date: 20090706
  Receipt Date: 20090703
  Transmission Date: 20100115
  Serious: Yes (Hospitalization, Other)
  Sender: FDA-Public Use
  Company Number: PHHO2007CA14890

PATIENT
  Sex: Male
  Weight: 92 kg

DRUGS (7)
  1. PLACEBO COMP-PLA+ [Suspect]
     Indication: ACUTE CORONARY SYNDROME
     Dosage: PLACEBO
     Route: 048
     Dates: start: 20070810, end: 20070901
  2. METOPROLOL TARTRATE [Suspect]
  3. LIPITOR [Suspect]
  4. ASPIRIN [Concomitant]
  5. PLAVIX [Concomitant]
  6. NITROGLYCERIN [Concomitant]
  7. NICOTINE [Concomitant]

REACTIONS (4)
  - GOUT [None]
  - INFECTION [None]
  - PAIN [None]
  - WHITE BLOOD CELL COUNT INCREASED [None]
